FAERS Safety Report 10945285 (Version 2)
Quarter: 2015Q2

REPORT INFORMATION
  Report Type: Spontaneous
  Country: IT (occurrence: IT)
  Receive Date: 20150323
  Receipt Date: 20150407
  Transmission Date: 20150821
  Serious: Yes (Hospitalization)
  Sender: FDA-Public Use
  Company Number: IT-PFIZER INC-HQWYE097509AUG04

PATIENT
  Age: 42 Year
  Sex: Female

DRUGS (4)
  1. TRANEXAMIC ACID. [Suspect]
     Active Substance: TRANEXAMIC ACID
     Indication: MENORRHAGIA
     Dosage: 3 GRAMS DAILY IN DIVIDED DOSES
     Route: 030
  2. FEDRA [Interacting]
     Active Substance: ETHINYL ESTRADIOL\GESTODENE
     Indication: UTERINE LEIOMYOMA
  3. TRANEXAMIC ACID. [Interacting]
     Active Substance: TRANEXAMIC ACID
     Indication: UTERINE LEIOMYOMA
  4. FEDRA [Interacting]
     Active Substance: ETHINYL ESTRADIOL\GESTODENE
     Indication: MENORRHAGIA
     Dosage: 1 DF, 1X/DAY (ETHINYLESTRADIOL 20 MCG AND GESTODENE 75 MCG)
     Route: 048

REACTIONS (3)
  - Coronary artery disease [Recovered/Resolved]
  - Drug interaction [Recovered/Resolved]
  - Myocardial infarction [Recovered/Resolved]
